FAERS Safety Report 7157586-6 (Version None)
Quarter: 2010Q4

REPORT INFORMATION
  Report Type: 
  Country: None (occurrence: None)
  Receive Date: 20101214
  Receipt Date: 20100226
  Transmission Date: 20110411
  Serious: No
  Sender: FDA-Public Use
  Company Number: US-ASTRAZENECA-2010SE08603

PATIENT
  Sex: Male

DRUGS (3)
  1. CRESTOR [Suspect]
     Indication: LIPIDS
     Route: 048
  2. CRESTOR [Suspect]
     Route: 048
  3. TRICOR [Suspect]

REACTIONS (3)
  - INTENTIONAL DRUG MISUSE [None]
  - MUSCLE STRAIN [None]
  - MYALGIA [None]
